FAERS Safety Report 23298101 (Version 1)
Quarter: 2023Q4

REPORT INFORMATION
  Report Type: Spontaneous
  Country: CA (occurrence: CA)
  Receive Date: 20231214
  Receipt Date: 20231214
  Transmission Date: 20240110
  Serious: Yes (Other)
  Sender: FDA-Public Use
  Company Number: CA-FreseniusKabi-FK202320297

PATIENT
  Age: 6 Year
  Sex: Female

DRUGS (4)
  1. ADALIMUMAB [Suspect]
     Active Substance: ADALIMUMAB\ISOPROPYL ALCOHOL
     Indication: Product used for unknown indication
     Dosage: FORM OF ADMIN.- INJECTION?ROUTE OF ADMIN.- SUBCUTANEOUS
  2. ADALIMUMAB [Suspect]
     Active Substance: ADALIMUMAB\ISOPROPYL ALCOHOL
     Dosage: FORM OF ADMIN.- SOLUTION SUBCUTANEOUS?ROUTE OF ADMIN.- SUBCUTANEOUS
  3. METHOTREXATE [Suspect]
     Active Substance: METHOTREXATE
     Indication: Product used for unknown indication
     Dosage: FORM OF ADMIN.- SOLUTION FOR INJECTION?ROUTE OF ADMIN.- SUBCUTANEOUS
  4. METHOTREXATE [Suspect]
     Active Substance: METHOTREXATE
     Dosage: FORM OF ADMIN.- TABLET?ROUTE OF ADMIN.- ORAL

REACTIONS (4)
  - Cataract [Unknown]
  - Condition aggravated [Unknown]
  - Off label use [Unknown]
  - Drug ineffective [Unknown]
